FAERS Safety Report 8064121-7 (Version None)
Quarter: 2012Q1

REPORT INFORMATION
  Report Type: 
  Country: None (occurrence: None)
  Receive Date: 20120123
  Receipt Date: 20120120
  Transmission Date: 20120608
  Serious: Yes (Hospitalization)
  Sender: FDA-Public Use
  Company Number: US-GLAXOSMITHKLINE-B0717822A

PATIENT
  Age: 38 Year
  Sex: Female

DRUGS (1)
  1. AVANDIA [Suspect]
     Indication: DIABETES MELLITUS
     Dosage: 8MG PER DAY
     Route: 048
     Dates: start: 20030201, end: 20070801

REACTIONS (11)
  - CHEST PAIN [None]
  - AMNESIA [None]
  - ASTHENIA [None]
  - HEART RATE INCREASED [None]
  - DYSPNOEA [None]
  - HYPOTENSION [None]
  - VISION BLURRED [None]
  - TREMOR [None]
  - CHEST DISCOMFORT [None]
  - CARDIAC FAILURE CONGESTIVE [None]
  - FATIGUE [None]
